FAERS Safety Report 5847804-6 (Version None)
Quarter: 2008Q3

REPORT INFORMATION
  Report Type: 
  Country: None (occurrence: None)
  Receive Date: 20080814
  Receipt Date: 20080730
  Transmission Date: 20090109
  Serious: Yes (Other)
  Sender: FDA-Public Use
  Company Number: 19913

PATIENT
  Age: 31 Year
  Sex: Female
  Weight: 64.4 kg

DRUGS (1)
  1. PACLITAXEL [Suspect]
     Indication: CERVIX CARCINOMA
     Dosage: 300 MG DAILY IV
     Route: 042
     Dates: start: 20080523

REACTIONS (8)
  - BACK PAIN [None]
  - CHEST DISCOMFORT [None]
  - ERYTHEMA [None]
  - FLUSHING [None]
  - HYPERHIDROSIS [None]
  - HYPERSENSITIVITY [None]
  - HYPOAESTHESIA FACIAL [None]
  - INCORRECT DRUG ADMINISTRATION RATE [None]
